FAERS Safety Report 23089296 (Version 1)
Quarter: 2023Q4

REPORT INFORMATION
  Report Type: Spontaneous
  Country: MY (occurrence: MY)
  Receive Date: 20231020
  Receipt Date: 20231020
  Transmission Date: 20240110
  Serious: Yes (Hospitalization, Other)
  Sender: FDA-Public Use
  Company Number: MY-LEADINGPHARMA-MY-2023LEALIT00300

PATIENT
  Age: 80 Year
  Sex: Female

DRUGS (1)
  1. HYDROCHLOROTHIAZIDE [Suspect]
     Active Substance: HYDROCHLOROTHIAZIDE
     Indication: Cardiac failure
     Route: 065

REACTIONS (2)
  - Osmotic demyelination syndrome [Recovering/Resolving]
  - Hyponatraemia [Recovering/Resolving]
